FAERS Safety Report 5697886-X (Version None)
Quarter: 2008Q2

REPORT INFORMATION
  Report Type: 
  Country: None (occurrence: None)
  Receive Date: 20080404
  Receipt Date: 20080404
  Transmission Date: 20081010
  Serious: Yes (Other)
  Sender: FDA-Public Use
  Company Number: None

PATIENT
  Age: 45 Year
  Sex: Male

DRUGS (20)
  1. AUGMENTIN '125' [Suspect]
     Dosage: 4 DOSES TOTAL
     Dates: start: 20070416, end: 20070418
  2. ACETAMINOPHEN AND OXYCODONE HCL [Concomitant]
  3. OXYCODONE AND ACETAMINOPHEN [Concomitant]
  4. CEFAZOLIN [Concomitant]
  5. REGLAN [Concomitant]
  6. ZOFRAN [Concomitant]
  7. PROPOFOL [Concomitant]
  8. ZEMURON [Concomitant]
  9. SUCCINYCHOLINE [Concomitant]
  10. VERSED [Concomitant]
  11. FENTANYL [Concomitant]
  12. TORADOL [Concomitant]
  13. DECADRON [Concomitant]
  14. NITROUS SEROFLURANE [Concomitant]
  15. DEMEROL [Concomitant]
  16. PERCOCET [Concomitant]
  17. ACETAMINOPHEN [Concomitant]
  18. NAPROXEN [Concomitant]
  19. ASPIRIN [Concomitant]
  20. CLARITIN [Concomitant]

REACTIONS (3)
  - HEPATIC STEATOSIS [None]
  - HEPATITIS TOXIC [None]
  - LIVER INJURY [None]
